FAERS Safety Report 9675793 (Version 2)
Quarter: 2014Q1

REPORT INFORMATION
  Report Type: Spontaneous
  Country: US (occurrence: US)
  Receive Date: 20131107
  Receipt Date: 20140219
  Transmission Date: 20141002
  Serious: Yes (Other)
  Sender: FDA-Public Use
  Company Number: US-BRISTOL-MYERS SQUIBB COMPANY-19777978

PATIENT
  Age: 51 Year
  Sex: Female
  Weight: 95.24 kg

DRUGS (13)
  1. BYETTA PEN DISPOSABLE [Suspect]
     Dosage: 10MCG /0.04ML SINCE 05-FEB-2008-30-AUG-2010.?10MCG /0.04ML SINCE 02-NOV-2012 TO 01-MAR-2013.
     Dates: start: 20071030
  2. RHINOCORT [Concomitant]
     Route: 045
  3. QUINAPRIL [Concomitant]
  4. ALLEGRA [Concomitant]
  5. MECLIZINE [Concomitant]
  6. ADVAIR DISKUS [Concomitant]
     Dosage: 100 MCG-50 MCG/DOSE FOR INHALATION
     Route: 055
  7. NEXIUM [Concomitant]
  8. TOPAMAX [Concomitant]
     Route: 048
     Dates: end: 20120318
  9. PROAIR HFA [Concomitant]
     Dosage: ACTUATION AEROSOL INHALER.
  10. IMITREX [Concomitant]
  11. PRAVASTATIN SODIUM [Concomitant]
     Route: 048
     Dates: end: 20100616
  12. BAYER ASPIRIN [Concomitant]
  13. ESTRADIOL [Concomitant]
     Dates: start: 20071030

REACTIONS (1)
  - Thyroid cancer [Unknown]
